FAERS Safety Report 5889639-4 (Version None)
Quarter: 2008Q3

REPORT INFORMATION
  Report Type: 
  Country: None (occurrence: None)
  Receive Date: 20080919
  Receipt Date: 20080912
  Transmission Date: 20090109
  Serious: Yes (Other)
  Sender: FDA-Public Use
  Company Number: B0537828A

PATIENT
  Age: 58 Year
  Sex: Male

DRUGS (2)
  1. ROPINIROLE [Suspect]
     Indication: PARKINSON'S DISEASE
     Route: 065
  2. CABERGOLINE [Concomitant]

REACTIONS (3)
  - AGGRESSION [None]
  - COMPULSIVE SHOPPING [None]
  - HYPERSEXUALITY [None]
